FAERS Safety Report 7053922-X (Version None)
Quarter: 2010Q4

REPORT INFORMATION
  Report Type: 
  Country: None (occurrence: None)
  Receive Date: 20101020
  Receipt Date: 20101007
  Transmission Date: 20110411
  Serious: Yes (Hospitalization)
  Sender: FDA-Public Use
  Company Number: US-CELGENEUS-163-21880-10100772

PATIENT
  Sex: Male

DRUGS (1)
  1. REVLIMID [Suspect]
     Route: 048
     Dates: start: 20100501, end: 20100929

REACTIONS (3)
  - MUSCLE SPASMS [None]
  - OEDEMA PERIPHERAL [None]
  - PAIN [None]
